FAERS Safety Report 23083573 (Version 1)
Quarter: 2023Q4

REPORT INFORMATION
  Report Type: Spontaneous
  Country: CH (occurrence: CH)
  Receive Date: 20231019
  Receipt Date: 20231019
  Transmission Date: 20240110
  Serious: Yes (Death, Life-Threatening, Hospitalization, Other)
  Sender: FDA-Public Use
  Company Number: CH-SM-2020-10888

PATIENT
  Age: 83 Year
  Sex: Female

DRUGS (5)
  1. ENOXAPARIN SODIUM [Interacting]
     Active Substance: ENOXAPARIN SODIUM
     Indication: Anticoagulation drug level below therapeutic
     Dosage: 100 MG, TOTAL
     Route: 058
     Dates: start: 20200206, end: 20200206
  2. FLUOXETINE HYDROCHLORIDE [Interacting]
     Active Substance: FLUOXETINE HYDROCHLORIDE
     Indication: Depression
     Dosage: 1 DF
     Route: 048
  3. PHENPROCOUMON [Interacting]
     Active Substance: PHENPROCOUMON
     Indication: Cardiac valve prosthesis user
     Dosage: 1 DF, QD (3MG)
     Route: 048
     Dates: start: 2013, end: 20200207
  4. DAFALGAN [Concomitant]
     Active Substance: ACETAMINOPHEN
     Dosage: UNK
     Route: 048
  5. METFORMIN [Concomitant]
     Active Substance: METFORMIN HYDROCHLORIDE
     Dosage: UNK
     Route: 048

REACTIONS (3)
  - Cerebral haemorrhage [Fatal]
  - Drug interaction [Fatal]
  - Drug interaction [Fatal]

NARRATIVE: CASE EVENT DATE: 20200206
